FAERS Safety Report 10424408 (Version 1)
Quarter: 2014Q3

REPORT INFORMATION
  Report Type: Spontaneous
  Country: US (occurrence: US)
  Receive Date: 20140902
  Receipt Date: 20140902
  Transmission Date: 20150326
  Serious: Yes (Other)
  Sender: FDA-Public Use
  Company Number: US-GE HEALTHCARE MEDICAL DIAGNOSTICS-MYVW-PR-1408S-0097

PATIENT
  Age: 55 Year
  Sex: Female
  Weight: 143.92 kg

DRUGS (5)
  1. TECHNETIUM (TC99M) GENERATOR (MANF. UNKNOWN) [Concomitant]
  2. MYOVIEW [Suspect]
     Active Substance: TECHNETIUM TC-99M TETROFOSMIN\TETROFOSMIN
     Indication: DIAGNOSTIC PROCEDURE
  3. MYOVIEW [Suspect]
     Active Substance: TECHNETIUM TC-99M TETROFOSMIN\TETROFOSMIN
     Indication: HYPERTENSION
     Route: 042
     Dates: start: 20140826, end: 20140826
  4. MYOVIEW [Suspect]
     Active Substance: TECHNETIUM TC-99M TETROFOSMIN\TETROFOSMIN
     Indication: PALPITATIONS
  5. UNSPECIFIED CONCOMITANT MEDICATIONS [Concomitant]

REACTIONS (1)
  - Dyspnoea [Recovered/Resolved]

NARRATIVE: CASE EVENT DATE: 20140826
